FAERS Safety Report 8813477 (Version 1)
Quarter: 2012Q4

REPORT INFORMATION
  Report Type: 
  Country: US (occurrence: US)
  Receive Date: 20120927
  Receipt Date: 20120927
  Transmission Date: 20130627
  Serious: No
  Sender: FDA-Public Use
  Company Number: US-AMGEN-USASP2012045755

PATIENT
  Age: 83 Year
  Sex: Female

DRUGS (12)
  1. PROLIA [Suspect]
     Indication: INTERVERTEBRAL DISC COMPRESSION
     Dosage: 60 mg, q6mo
     Dates: start: 201202
  2. SYNTHROID [Concomitant]
     Dosage: UNK UNK, qd
  3. PLAVIX [Concomitant]
     Dosage: UNK UNK, qd
  4. TOPROL [Concomitant]
     Dosage: UNK UNK, qd
  5. CORTISONE [Concomitant]
     Dosage: UNK UNK, qd
  6. LIPITOR [Concomitant]
     Dosage: UNK UNK, qd
     Dates: start: 201207, end: 201207
  7. NORVASC [Concomitant]
     Dosage: UNK UNK, qd
  8. CENTRUM SILVER                     /01292501/ [Concomitant]
     Dosage: UNK UNK, qd
  9. BIOTIN [Concomitant]
     Dosage: UNK UNK, qd
  10. VITAMIN D /00107901/ [Concomitant]
     Dosage: UNK UNK, qd
  11. TUMS                               /00193601/ [Concomitant]
     Dosage: UNK UNK, qd
  12. JANUVIA [Concomitant]

REACTIONS (3)
  - Arthralgia [Not Recovered/Not Resolved]
  - Myalgia [Not Recovered/Not Resolved]
  - Device breakage [Not Recovered/Not Resolved]
